FAERS Safety Report 7426325-3 (Version None)
Quarter: 2011Q2

REPORT INFORMATION
  Report Type: 
  Country: None (occurrence: None)
  Receive Date: 20110420
  Receipt Date: 20110412
  Transmission Date: 20111010
  Serious: Yes (Other)
  Sender: FDA-Public Use
  Company Number: B0712869A

PATIENT
  Sex: Female
  Weight: 47 kg

DRUGS (12)
  1. AMLODIN [Concomitant]
     Dosage: 5MG PER DAY
     Route: 048
     Dates: start: 20090430, end: 20090527
  2. OMEPRAL [Concomitant]
     Dosage: 20MG PER DAY
     Route: 048
     Dates: start: 20090430
  3. GRAN [Concomitant]
     Dates: start: 20090523, end: 20090602
  4. CRAVIT [Concomitant]
     Dosage: 300MG PER DAY
     Route: 048
     Dates: start: 20090519, end: 20090530
  5. RAMELTEON [Concomitant]
     Dosage: .3MG PER DAY
     Route: 042
     Dates: start: 20090519, end: 20090520
  6. FLUNITRAZEPAM [Concomitant]
     Dosage: 1MG PER DAY
     Route: 048
     Dates: start: 20090520
  7. DEXAMETHASONE [Concomitant]
     Dosage: 20MG PER DAY
     Dates: start: 20090519, end: 20090520
  8. ALKERAN [Suspect]
     Indication: STEM CELL TRANSPLANT
     Dosage: 70MGM2 PER DAY
     Route: 042
     Dates: start: 20090519, end: 20090520
  9. ZYPREXA [Concomitant]
     Dosage: 5MG PER DAY
     Route: 048
     Dates: start: 20090520, end: 20100622
  10. MEVALOTIN [Concomitant]
     Dosage: 10MG PER DAY
     Route: 048
     Dates: start: 20090430
  11. ITRIZOLE [Concomitant]
     Dosage: 20ML PER DAY
     Route: 048
     Dates: start: 20090519, end: 20090622
  12. ZOVIRAX [Concomitant]
     Dosage: 1000MG PER DAY
     Route: 048
     Dates: start: 20090519, end: 20090622

REACTIONS (1)
  - FEBRILE NEUTROPENIA [None]
